FAERS Safety Report 25605260 (Version 1)
Quarter: 2025Q3

REPORT INFORMATION
  Report Type: Spontaneous
  Country: JP (occurrence: JP)
  Receive Date: 20250725
  Receipt Date: 20250725
  Transmission Date: 20251021
  Serious: Yes (Hospitalization)
  Sender: EISAI
  Company Number: JP-Eisai-EC-2025-193776

PATIENT
  Age: 68 Year
  Sex: Female

DRUGS (9)
  1. LENVIMA [Suspect]
     Active Substance: LENVATINIB
     Indication: Endometrial cancer
     Dates: start: 20231206, end: 20240118
  2. LENVIMA [Suspect]
     Active Substance: LENVATINIB
     Dates: start: 20240125, end: 20240201
  3. LENVIMA [Suspect]
     Active Substance: LENVATINIB
     Dates: start: 20240215, end: 20240404
  4. LENVIMA [Suspect]
     Active Substance: LENVATINIB
     Dates: start: 20240502, end: 20240704
  5. KEYTRUDA [Suspect]
     Active Substance: PEMBROLIZUMAB
     Indication: Endometrial cancer
     Dates: start: 20231206, end: 20231206
  6. KEYTRUDA [Suspect]
     Active Substance: PEMBROLIZUMAB
     Indication: Cervix carcinoma
     Dates: start: 20240104, end: 20240307
  7. KEYTRUDA [Suspect]
     Active Substance: PEMBROLIZUMAB
     Dates: start: 20240502, end: 20240613
  8. LEVOTHYROXINE SODIUM [Concomitant]
     Active Substance: LEVOTHYROXINE SODIUM
     Indication: Hypothyroidism
     Dates: start: 20240307, end: 202411
  9. BONVIVA [Concomitant]
     Active Substance: IBANDRONATE SODIUM
     Indication: Product used for unknown indication

REACTIONS (1)
  - Pulmonary toxicity [Unknown]

NARRATIVE: CASE EVENT DATE: 20240707
